FAERS Safety Report 5692021-6 (Version None)
Quarter: 2008Q2

REPORT INFORMATION
  Report Type: 
  Country: None (occurrence: None)
  Receive Date: 20080402
  Receipt Date: 20080328
  Transmission Date: 20081010
  Serious: Yes (Hospitalization)
  Sender: FDA-Public Use
  Company Number: US-MERCK-0803USA05019

PATIENT
  Age: 5 Year
  Sex: Female

DRUGS (3)
  1. SINGULAIR [Suspect]
     Indication: COUGH
     Route: 048
     Dates: start: 20060301
  2. NASONEX [Concomitant]
     Route: 065
  3. ALBUTEROL [Concomitant]
     Indication: WHEEZING
     Route: 065

REACTIONS (3)
  - AGGRESSION [None]
  - PERSONALITY CHANGE [None]
  - STAPHYLOCOCCAL SKIN INFECTION [None]
